FAERS Safety Report 9339313 (Version 1)
Quarter: 2013Q2

REPORT INFORMATION
  Report Type: Spontaneous
  Country: GR (occurrence: GR)
  Receive Date: 20130610
  Receipt Date: 20130610
  Transmission Date: 20140414
  Serious: Yes (Hospitalization, Other)
  Sender: FDA-Public Use
  Company Number: PHHY2013GR045815

PATIENT
  Age: 54 Year
  Sex: Female

DRUGS (1)
  1. GILENYA [Suspect]
     Indication: MULTIPLE SCLEROSIS
     Dosage: 0.5 MG, QD
     Route: 048
     Dates: start: 20111021, end: 20130503

REACTIONS (10)
  - Demyelination [Unknown]
  - Herpes zoster [Recovered/Resolved]
  - Encephalitis [Recovered/Resolved]
  - Facial paresis [Recovered/Resolved]
  - Hypoglossal nerve paresis [Recovered/Resolved]
  - Headache [Recovered/Resolved]
  - Confusional state [Recovered/Resolved]
  - Pleocytosis [Recovered/Resolved]
  - CSF protein increased [Recovered/Resolved]
  - Lymphocyte count decreased [Unknown]
